FAERS Safety Report 19699824 (Version 2)
Quarter: 2021Q3

REPORT INFORMATION
  Report Type: Other
  Country: BR (occurrence: BR)
  Receive Date: 20210814
  Receipt Date: 20210826
  Transmission Date: 20211014
  Serious: No
  Sender: FDA-Public Use
  Company Number: BR-ROCHE-2885892

PATIENT
  Age: 28 Year
  Sex: Male

DRUGS (11)
  1. OCRELIZUMAB. [Suspect]
     Active Substance: OCRELIZUMAB
     Indication: RELAPSING-REMITTING MULTIPLE SCLEROSIS
  2. BACLOFEN. [Concomitant]
     Active Substance: BACLOFEN
     Route: 048
     Dates: start: 20181001
  3. AMINOFILINA [Concomitant]
     Active Substance: AMINOPHYLLINE
     Route: 042
     Dates: start: 20210329, end: 20210329
  4. TENOXICAM [Concomitant]
     Active Substance: TENOXICAM
     Route: 042
     Dates: start: 20210329, end: 20210329
  5. CLORETO DE SODIO [Concomitant]
     Route: 042
     Dates: start: 20210329, end: 20210329
  6. DIPIRONA SODICA [Concomitant]
     Route: 042
     Dates: start: 20210329, end: 20210329
  7. HIDROCORTISONA [Concomitant]
     Active Substance: HYDROCORTISONE
     Route: 042
     Dates: start: 20210329, end: 20210329
  8. OCRELIZUMAB. [Suspect]
     Active Substance: OCRELIZUMAB
     Indication: PRIMARY PROGRESSIVE MULTIPLE SCLEROSIS
     Route: 042
     Dates: start: 20201023
  9. PAROXETINE. [Concomitant]
     Active Substance: PAROXETINE
     Route: 048
     Dates: start: 20181001
  10. CARBAMAZEPINE. [Concomitant]
     Active Substance: CARBAMAZEPINE
     Route: 048
     Dates: start: 20191201
  11. SALBUTAMOL [Concomitant]
     Active Substance: ALBUTEROL
     Route: 042
     Dates: start: 20210329, end: 20210330

REACTIONS (1)
  - COVID-19 [Recovered/Resolved]

NARRATIVE: CASE EVENT DATE: 202104
